FAERS Safety Report 4376495-9 (Version None)
Quarter: 2004Q2

REPORT INFORMATION
  Report Type: 
  Country: None (occurrence: None)
  Receive Date: 20040611
  Receipt Date: 20040611
  Transmission Date: 20050107
  Serious: Yes (Hospitalization)
  Sender: FDA-Public Use
  Company Number: None

PATIENT
  Age: 71 Month
  Sex: Female
  Weight: 49.8957 kg

DRUGS (8)
  1. DOCETAXEL 20 MG/M2 AVENTIS [Suspect]
     Indication: NON-SMALL CELL LUNG CANCER
     Dosage: 30 MG Q WK X 7 IV
     Route: 042
     Dates: start: 20040510, end: 20040601
  2. CARBOPLATIN [Suspect]
     Indication: NON-SMALL CELL LUNG CANCER
     Dosage: 158 MG Q WK X 7 IV
     Route: 042
     Dates: start: 20040510, end: 20040601
  3. DYAZIDE [Concomitant]
  4. ACYCLOVIR [Concomitant]
  5. GLUCOSAMINE [Concomitant]
  6. TESALON PEARLS [Concomitant]
  7. COUMADIN [Concomitant]
  8. CELEBREX [Concomitant]

REACTIONS (4)
  - DISEASE RECURRENCE [None]
  - HERPES ZOSTER [None]
  - MUCOSAL INFLAMMATION [None]
  - OESOPHAGITIS [None]
